FAERS Safety Report 8879084 (Version 1)
Quarter: 2012Q4

REPORT INFORMATION
  Report Type: Spontaneous
  Country: US (occurrence: None)
  Receive Date: 20121031
  Receipt Date: 20121031
  Transmission Date: 20130627
  Serious: No
  Sender: FDA-Public Use
  Company Number: None

PATIENT
  Age: 70 Year
  Sex: Male
  Weight: 91.4 kg

DRUGS (3)
  1. ALLOPURINOL [Suspect]
     Indication: HYPERURICEMIA
     Route: 048
     Dates: start: 20120925, end: 20121008
  2. ALLOPURINOL [Suspect]
     Indication: CHEMOTHERAPY
     Route: 048
     Dates: start: 20120925, end: 20121008
  3. RITUXIMAB [Suspect]
     Route: 042
     Dates: start: 20120926, end: 20120926

REACTIONS (3)
  - Erythema multiforme [None]
  - Pyrexia [None]
  - Stevens-Johnson syndrome [None]
